FAERS Safety Report 8135471-0 (Version None)
Quarter: 2012Q1

REPORT INFORMATION
  Report Type: 
  Country: None (occurrence: None)
  Receive Date: 20120214
  Receipt Date: 20120206
  Transmission Date: 20120608
  Serious: Yes (Hospitalization)
  Sender: FDA-Public Use
  Company Number: US-PURDUE-USA-2012-0081996

PATIENT
  Sex: Female

DRUGS (5)
  1. MORPHINE [Suspect]
     Indication: PAIN
     Dosage: 120 MG, Q3H
  2. FIORICET [Suspect]
     Indication: MIGRAINE
  3. AMBIEN [Suspect]
     Indication: INSOMNIA
  4. MORPHINE SULFATE [Suspect]
     Indication: PAIN
     Dosage: 800 MG, Q8H
  5. VALIUM [Suspect]
     Indication: MUSCLE SPASMS

REACTIONS (8)
  - HALLUCINATION [None]
  - DRUG WITHDRAWAL SYNDROME [None]
  - MALAISE [None]
  - RESPIRATORY ARREST [None]
  - DEHYDRATION [None]
  - CONVULSION [None]
  - BLINDNESS [None]
  - VOMITING [None]
